FAERS Safety Report 8459086-X (Version None)
Quarter: 2012Q2

REPORT INFORMATION
  Report Type: 
  Country: None (occurrence: None)
  Receive Date: 20120622
  Receipt Date: 20120612
  Transmission Date: 20120825
  Serious: Yes (Other)
  Sender: FDA-Public Use
  Company Number: JP-VERTEX PHARMACEUTICALS INC.-AE-2012-008908

PATIENT
  Age: 54 Year
  Sex: Female

DRUGS (3)
  1. PEGINTERFERON ALFA-2B [Concomitant]
     Route: 058
     Dates: start: 20120605, end: 20120609
  2. TELAVIC (TELAPREVIR) [Suspect]
     Route: 048
     Dates: start: 20120605, end: 20120609
  3. RIBAVIRIN [Concomitant]
     Route: 048
     Dates: start: 20120605, end: 20120609

REACTIONS (2)
  - PARAESTHESIA ORAL [None]
  - RASH [None]
